FAERS Safety Report 8981664 (Version 1)
Quarter: 2012Q4

REPORT INFORMATION
  Report Type: 
  Country: US (occurrence: US)
  Receive Date: 20121212
  Receipt Date: 20121212
  Transmission Date: 20130627
  Serious: Yes (Death, Other)
  Sender: FDA-Public Use
  Company Number: US-ASTELLAS-1125972

PATIENT
  Sex: Female

DRUGS (4)
  1. AVASTIN [Suspect]
     Indication: RENAL CANCER
     Route: 065
     Dates: start: 20050418
  2. AVASTIN [Suspect]
     Dosage: Reduced
     Route: 065
     Dates: start: 20050531
  3. TARCEVA [Suspect]
     Indication: PRODUCT USED FOR UNKNOWN INDICATION
     Dosage: Reduced on 31/May/2005
     Route: 065
  4. COUMADIN [Suspect]
     Indication: DEEP VEIN THROMBOSIS

REACTIONS (3)
  - Death [Fatal]
  - International normalised ratio increased [Unknown]
  - Diarrhoea [Unknown]
